FAERS Safety Report 9477093 (Version 1)
Quarter: 2013Q3

REPORT INFORMATION
  Report Type: Spontaneous
  Country: US (occurrence: US)
  Receive Date: 20130826
  Receipt Date: 20130826
  Transmission Date: 20140515
  Serious: Yes (Hospitalization)
  Sender: FDA-Public Use
  Company Number: US-BAYER-2013-100669

PATIENT
  Age: 66 Year
  Sex: Male
  Weight: 111.11 kg

DRUGS (1)
  1. BAYER GENUINE ASPIRIN ORIGINAL STRENGTH [Suspect]
     Indication: MYOCARDIAL INFARCTION
     Dosage: 2 DF, ONCE
     Route: 048
     Dates: start: 201206, end: 201206

REACTIONS (4)
  - Coronary artery occlusion [None]
  - Expired drug administered [None]
  - Off label use [None]
  - Therapeutic response unexpected [None]
